FAERS Safety Report 7914438-9 (Version None)
Quarter: 2011Q4

REPORT INFORMATION
  Report Type: 
  Country: None (occurrence: None)
  Receive Date: 20111115
  Receipt Date: 20111108
  Transmission Date: 20120403
  Serious: Yes (Hospitalization, Other)
  Sender: FDA-Public Use
  Company Number: US-CELGENEUS-163-21880-11103409

PATIENT
  Sex: Female
  Weight: 85.988 kg

DRUGS (5)
  1. RED BLOOD CELLS [Concomitant]
     Dosage: 2 UNITS
     Route: 041
     Dates: start: 20111026, end: 20111026
  2. RITUXIMAB [Suspect]
     Dosage: 375 MILLIGRAM/SQ. METER
     Route: 041
     Dates: start: 20110702, end: 20110829
  3. BENDAMUSTINE [Suspect]
     Dosage: 90 MILLIGRAM/SQ. METER
     Route: 041
     Dates: start: 20110702, end: 20110829
  4. REVLIMID [Suspect]
     Route: 048
  5. HYDROCORTISONE [Concomitant]
     Route: 065

REACTIONS (6)
  - HYPONATRAEMIA [None]
  - HAEMOGLOBIN DECREASED [None]
  - NEUTROPHIL COUNT DECREASED [None]
  - RASH [None]
  - FEBRILE NEUTROPENIA [None]
  - HYPOKALAEMIA [None]
